FAERS Safety Report 12615616 (Version 1)
Quarter: 2016Q3

REPORT INFORMATION
  Report Type: Spontaneous
  Country: US (occurrence: US)
  Receive Date: 20160802
  Receipt Date: 20160802
  Transmission Date: 20161109
  Serious: Yes (Hospitalization, Other)
  Sender: FDA-Public Use
  Company Number: US-AMGEN-USASP2016097133

PATIENT
  Age: 75 Year
  Sex: Female

DRUGS (1)
  1. PROLIA [Suspect]
     Active Substance: DENOSUMAB
     Indication: OSTEOPOROSIS POSTMENOPAUSAL
     Dosage: 60 MG/ML, Q6MO
     Route: 065
     Dates: start: 2010

REACTIONS (13)
  - Ileostomy [Unknown]
  - Head injury [Unknown]
  - Tendon disorder [Unknown]
  - Eosinophilic granulomatosis with polyangiitis [Unknown]
  - Hospitalisation [Unknown]
  - Eosinophil count increased [Unknown]
  - Brain operation [Unknown]
  - Skin ulcer [Unknown]
  - Blister [Unknown]
  - Pain in extremity [Unknown]
  - Fall [Unknown]
  - Spinal fracture [Unknown]
  - Peroneal nerve palsy [Unknown]

NARRATIVE: CASE EVENT DATE: 201512
